FAERS Safety Report 8429731-3 (Version None)
Quarter: 2012Q2

REPORT INFORMATION
  Report Type: 
  Country: None (occurrence: None)
  Receive Date: 20120612
  Receipt Date: 20120607
  Transmission Date: 20120825
  Serious: Yes (Other)
  Sender: FDA-Public Use
  Company Number: JP-PFIZER INC-2012138487

PATIENT
  Age: 55 Year
  Sex: Female

DRUGS (2)
  1. CELEBREX [Suspect]
     Indication: HIP DEFORMITY
     Dosage: UNK
     Route: 048
     Dates: start: 20100101
  2. CELEBREX [Suspect]
     Indication: KNEE DEFORMITY

REACTIONS (4)
  - DRUG INEFFECTIVE [None]
  - URTICARIA [None]
  - ANAPHYLACTIC SHOCK [None]
  - ANAPHYLACTIC REACTION [None]
